FAERS Safety Report 16813701 (Version 2)
Quarter: 2019Q3

REPORT INFORMATION
  Report Type: Spontaneous
  Country: US (occurrence: US)
  Receive Date: 20190917
  Receipt Date: 20190930
  Transmission Date: 20191005
  Serious: No
  Sender: FDA-Public Use
  Company Number: US-SHIRE-US201929831

PATIENT
  Sex: Female
  Weight: 51 kg

DRUGS (1)
  1. GATTEX [Suspect]
     Active Substance: TEDUGLUTIDE\WATER
     Indication: SHORT-BOWEL SYNDROME
     Dosage: 2.55 MILLIGRAM, 1X/DAY:QD
     Route: 058
     Dates: start: 20190910

REACTIONS (5)
  - Abdominal distension [Unknown]
  - Nausea [Unknown]
  - Gait inability [Unknown]
  - Adverse drug reaction [Unknown]
  - Hernia [Unknown]
